FAERS Safety Report 13851341 (Version 3)
Quarter: 2019Q2

REPORT INFORMATION
  Report Type: Report from Study
  Country: JP (occurrence: JP)
  Receive Date: 20170809
  Receipt Date: 20190626
  Transmission Date: 20190711
  Serious: Yes (Hospitalization, Other)
  Sender: FDA-Public Use
  Company Number: JP-OTSUKA-JP-2015-11628

PATIENT
  Age: 57 Year
  Sex: Female
  Weight: 66 kg

DRUGS (26)
  1. TOLVAPTAN [Suspect]
     Active Substance: TOLVAPTAN
     Dosage: 15 MG, QD, IN THE EVENING
     Route: 048
     Dates: start: 20150406, end: 20150705
  2. NATRIX [Suspect]
     Active Substance: INDAPAMIDE
     Indication: HYPERTENSION
     Dosage: 1 MG, QD
     Route: 048
     Dates: end: 20150305
  3. AZILVA [Suspect]
     Active Substance: AZILSARTAN KAMEDOXOMIL
     Indication: PRODUCT USED FOR UNKNOWN INDICATION
     Dosage: 40 MG, QD
     Route: 048
     Dates: start: 20190204
  4. LIPITOR [Concomitant]
     Active Substance: ATORVASTATIN CALCIUM
     Indication: PRODUCT USED FOR UNKNOWN INDICATION
     Dosage: 5 MG, QD
     Route: 048
  5. LUPRAC [Concomitant]
     Active Substance: TORSEMIDE
     Indication: PRODUCT USED FOR UNKNOWN INDICATION
     Dosage: 4 MG, QD
     Route: 048
     Dates: start: 20190401
  6. TOLVAPTAN [Suspect]
     Active Substance: TOLVAPTAN
     Dosage: 120MG/DAY, BID
     Route: 048
     Dates: start: 20170404, end: 20170429
  7. LOXONIN [Concomitant]
     Active Substance: LOXOPROFEN SODIUM
     Indication: BACK PAIN
     Dosage: 100 MG, QD
     Route: 061
     Dates: start: 20150608, end: 20150706
  8. ADALAT [Concomitant]
     Active Substance: NIFEDIPINE
     Dosage: 40 MG, QD
     Route: 048
     Dates: start: 20180416
  9. TOLVAPTAN [Suspect]
     Active Substance: TOLVAPTAN
     Dosage: 45 MG, QD, IN THE MORNING
     Route: 048
     Dates: start: 20150303, end: 20150405
  10. TOLVAPTAN [Suspect]
     Active Substance: TOLVAPTAN
     Dosage: 15 MG, QD, IN THE EVENING
     Route: 048
     Dates: start: 20150303, end: 20150405
  11. TOLVAPTAN [Suspect]
     Active Substance: TOLVAPTAN
     Dosage: 120MG/DAY, BID
     Route: 048
     Dates: start: 20150706, end: 20160731
  12. TOLVAPTAN [Suspect]
     Active Substance: TOLVAPTAN
     Dosage: 90 MG, QD
     Route: 048
     Dates: start: 20160801, end: 20170403
  13. NORSPAN [Suspect]
     Active Substance: BUPRENORPHINE
     Indication: MUSCULOSKELETAL PAIN
     Dosage: 5 MG, QW
     Route: 062
     Dates: start: 20170428, end: 20170429
  14. NATRIX [Suspect]
     Active Substance: INDAPAMIDE
     Indication: OEDEMA
  15. ALDACTONE A [Suspect]
     Active Substance: SPIRONOLACTONE
     Indication: PRODUCT USED FOR UNKNOWN INDICATION
     Dosage: 50 MG, QD
     Route: 048
     Dates: end: 20150305
  16. TOLVAPTAN [Suspect]
     Active Substance: TOLVAPTAN
     Dosage: 90 MG, QD
     Route: 048
     Dates: start: 20170501, end: 20170501
  17. MYSLEE [Concomitant]
     Active Substance: ZOLPIDEM TARTRATE
     Indication: PRODUCT USED FOR UNKNOWN INDICATION
     Dosage: 10 MG, QD
     Route: 048
     Dates: end: 20170626
  18. ATORVASTATIN [Concomitant]
     Active Substance: ATORVASTATIN
     Indication: PRODUCT USED FOR UNKNOWN INDICATION
     Dosage: 5 MG, QD
     Route: 048
  19. ADALAT [Concomitant]
     Active Substance: NIFEDIPINE
     Indication: PRODUCT USED FOR UNKNOWN INDICATION
     Dosage: 20 MG, QD
     Route: 048
     Dates: start: 20180319, end: 20180416
  20. OLMETEC [Suspect]
     Active Substance: OLMESARTAN MEDOXOMIL
     Indication: PRODUCT USED FOR UNKNOWN INDICATION
     Dosage: 20 MG, QD
     Route: 048
     Dates: end: 20190204
  21. CILNIDIPINE [Suspect]
     Active Substance: CILNIDIPINE
     Indication: PRODUCT USED FOR UNKNOWN INDICATION
     Dosage: 10 MG, QD
     Route: 048
  22. TOLVAPTAN [Suspect]
     Active Substance: TOLVAPTAN
     Indication: CONGENITAL CYSTIC KIDNEY DISEASE
     Dosage: 120MG/DAY, BID
     Route: 048
     Dates: start: 20170502
  23. TOLVAPTAN [Suspect]
     Active Substance: TOLVAPTAN
     Dosage: 75 MG, QD, IN THE MORNING
     Route: 048
     Dates: start: 20150406, end: 20150705
  24. ATELEC [Suspect]
     Active Substance: CILNIDIPINE
     Indication: PRODUCT USED FOR UNKNOWN INDICATION
     Dosage: 10 MG, QD
     Route: 048
     Dates: end: 20180319
  25. LOXONIN [Concomitant]
     Active Substance: LOXOPROFEN SODIUM
     Indication: PRODUCT USED FOR UNKNOWN INDICATION
     Dosage: 100 MG, QD
     Route: 061
  26. LOXONIN [Concomitant]
     Active Substance: LOXOPROFEN SODIUM
     Indication: PRODUCT USED FOR UNKNOWN INDICATION
     Dosage: 100 MG, QD
     Route: 061
     Dates: start: 20160502, end: 20170821

REACTIONS (21)
  - Renal impairment [Not Recovered/Not Resolved]
  - Hyperuricaemia [Recovering/Resolving]
  - Helicobacter gastritis [Recovered/Resolved]
  - Hypertension [Not Recovered/Not Resolved]
  - Dehydration [Recovered/Resolved]
  - Hyperkalaemia [Not Recovered/Not Resolved]
  - Hypertriglyceridaemia [Recovering/Resolving]
  - Dehydration [Recovered/Resolved]
  - Oedema peripheral [Not Recovered/Not Resolved]
  - Constipation [Recovered/Resolved]
  - Vomiting [Recovered/Resolved]
  - Left ventricular hypertrophy [Recovered/Resolved]
  - Inappropriate schedule of product administration [Unknown]
  - Hyperkalaemia [Recovering/Resolving]
  - Dizziness [Recovered/Resolved]
  - Back pain [Recovered/Resolved]
  - Dehydration [Recovered/Resolved]
  - Dehydration [Recovered/Resolved]
  - Periarthritis [Recovering/Resolving]
  - Back pain [Recovering/Resolving]
  - Arthralgia [Recovering/Resolving]

NARRATIVE: CASE EVENT DATE: 20150304
